FAERS Safety Report 7359291-X (Version None)
Quarter: 2011Q1

REPORT INFORMATION
  Report Type: 
  Country: None (occurrence: None)
  Receive Date: 20110317
  Receipt Date: 20091113
  Transmission Date: 20110831
  Serious: No
  Sender: FDA-Public Use
  Company Number: US-PFIZER INC-2009283115

PATIENT
  Age: 67 Year
  Sex: Female

DRUGS (3)
  1. VALSARTAN [Suspect]
     Dosage: UNK
  2. ALISKIREN [Suspect]
     Dosage: UNK
  3. NORVASC [Suspect]
     Dosage: UNK

REACTIONS (3)
  - DEPRESSION [None]
  - RHINORRHOEA [None]
  - CHEST PAIN [None]
